FAERS Safety Report 4528567-3 (Version None)
Quarter: 2004Q4

REPORT INFORMATION
  Report Type: 
  Country: None (occurrence: None)
  Receive Date: 20041216
  Receipt Date: 20041213
  Transmission Date: 20050328
  Serious: Yes (Hospitalization)
  Sender: FDA-Public Use
  Company Number: PHRM2004FR03658

PATIENT
  Age: 74 Year
  Sex: Female

DRUGS (5)
  1. TRILEPTAL [Suspect]
     Indication: CONVULSION
     Dosage: 900 MG DAILY
     Route: 048
     Dates: start: 20041015, end: 20041111
  2. PREVISCAN [Concomitant]
     Route: 048
     Dates: start: 20041015, end: 20041117
  3. LASILIX [Suspect]
     Dosage: UNK, UNK
     Route: 048
     Dates: start: 20041001
  4. DIFFU K [Concomitant]
  5. DOLIPRANE [Concomitant]

REACTIONS (10)
  - DERMATITIS EXFOLIATIVE [None]
  - DISTURBANCE IN ATTENTION [None]
  - DYSPNOEA [None]
  - EOSINOPHILIA [None]
  - HAEMATURIA [None]
  - LEUKOCYTOSIS [None]
  - OLIGURIA [None]
  - PRURITUS [None]
  - RASH MACULO-PAPULAR [None]
  - URINARY TRACT INFECTION [None]
